FAERS Safety Report 7051882-9 (Version None)
Quarter: 2010Q4

REPORT INFORMATION
  Report Type: 
  Country: None (occurrence: None)
  Receive Date: 20101019
  Receipt Date: 20101015
  Transmission Date: 20110411
  Serious: Yes (Death, Life-Threatening, Hospitalization)
  Sender: FDA-Public Use
  Company Number: PE-ROCHE-677636

PATIENT
  Sex: Male
  Weight: 66.7 kg

DRUGS (5)
  1. TOCILIZUMAB [Suspect]
     Dosage: LAST DOSE PRIOR TO SAE 17 DECEMBER 2009.
     Route: 042
     Dates: start: 20070412
  2. TOCILIZUMAB [Suspect]
     Dosage: PATIENT WAS ENROLLED IN WA17824.
     Route: 042
  3. DICLOFENAC SODIUM [Concomitant]
     Route: 048
  4. PREDNISONE [Concomitant]
     Route: 048
     Dates: start: 20090113
  5. METHOTREXATE [Concomitant]
     Dates: start: 20070801

REACTIONS (2)
  - ACQUIRED IMMUNODEFICIENCY SYNDROME [None]
  - CENTRAL NERVOUS SYSTEM INFECTION [None]
